FAERS Safety Report 5262793-3 (Version None)
Quarter: 2007Q1

REPORT INFORMATION
  Report Type: 
  Country: None (occurrence: None)
  Receive Date: 20070312
  Receipt Date: 20070227
  Transmission Date: 20070707
  Serious: Yes (Other)
  Sender: FDA-Public Use
  Company Number: NO-GLAXOSMITHKLINE-B0459624A

PATIENT
  Sex: Male

DRUGS (9)
  1. LAMICTAL [Suspect]
     Indication: DRUG USE FOR UNKNOWN INDICATION
     Dates: start: 20050101
  2. INSULIN [Concomitant]
  3. LIPITOR [Concomitant]
  4. RENITEC [Concomitant]
  5. FUROSEMIDE [Concomitant]
  6. CARDURA [Concomitant]
  7. NORVASC [Concomitant]
  8. ALBYL-E [Concomitant]
  9. KEPPRA [Concomitant]

REACTIONS (1)
  - HYPOGLYCAEMIA [None]
